FAERS Safety Report 12422399 (Version 5)
Quarter: 2016Q3

REPORT INFORMATION
  Report Type: Report from Study
  Country: JP (occurrence: JP)
  Receive Date: 20160601
  Receipt Date: 20160720
  Transmission Date: 20161109
  Serious: Yes (Death, Hospitalization, Other)
  Sender: FDA-Public Use
  Company Number: JP-BRISTOL-MYERS SQUIBB COMPANY-BMS-2015-057320

PATIENT
  Age: 76 Year
  Sex: Female

DRUGS (29)
  1. NIVOLUMAB [Suspect]
     Active Substance: NIVOLUMAB
     Dosage: 2 MG/KG, UNK
     Route: 041
     Dates: start: 20150225, end: 20150225
  2. NIVOLUMAB [Suspect]
     Active Substance: NIVOLUMAB
     Dosage: 2 MG/KG, UNK
     Route: 041
     Dates: start: 20150630, end: 20150630
  3. NIVOLUMAB [Suspect]
     Active Substance: NIVOLUMAB
     Dosage: 2 MG/KG, UNK
     Route: 041
     Dates: start: 20150721, end: 20150721
  4. NIVOLUMAB [Suspect]
     Active Substance: NIVOLUMAB
     Dosage: 2 MG/KG, UNK
     Route: 041
     Dates: start: 20150929, end: 20150929
  5. YERVOY [Suspect]
     Active Substance: IPILIMUMAB
     Indication: MALIGNANT MELANOMA
     Dosage: 3 MG/KG, UNK
     Route: 041
     Dates: start: 20160119, end: 20160119
  6. BAKTAR [Suspect]
     Active Substance: SULFAMETHOXAZOLE\TRIMETHOPRIM
     Indication: PRODUCT USED FOR UNKNOWN INDICATION
     Route: 065
  7. MYSLEE [Concomitant]
     Active Substance: ZOLPIDEM TARTRATE
     Indication: PRODUCT USED FOR UNKNOWN INDICATION
     Dosage: UNK
     Route: 065
     Dates: start: 20110728, end: 20160517
  8. NIVOLUMAB [Suspect]
     Active Substance: NIVOLUMAB
     Dosage: 2 MG/KG, UNK
     Route: 041
     Dates: start: 20150407, end: 20150407
  9. NIVOLUMAB [Suspect]
     Active Substance: NIVOLUMAB
     Dosage: 2 MG/KG, UNK
     Route: 041
     Dates: start: 20150428, end: 20150428
  10. NIVOLUMAB [Suspect]
     Active Substance: NIVOLUMAB
     Dosage: 2 MG/KG, UNK
     Route: 041
     Dates: start: 20150908, end: 20150908
  11. NASONEX [Concomitant]
     Active Substance: MOMETASONE FUROATE
     Indication: PRODUCT USED FOR UNKNOWN INDICATION
     Dosage: UNK
     Route: 065
     Dates: start: 20150519, end: 20160517
  12. NIVOLUMAB [Suspect]
     Active Substance: NIVOLUMAB
     Dosage: 2 MG/KG, UNK
     Route: 041
     Dates: start: 20151201, end: 20151201
  13. YERVOY [Suspect]
     Active Substance: IPILIMUMAB
     Dosage: 3 MG/KG, QD
     Route: 041
     Dates: start: 20160209, end: 20160209
  14. NEXIUM [Suspect]
     Active Substance: ESOMEPRAZOLE MAGNESIUM
     Indication: PRODUCT USED FOR UNKNOWN INDICATION
     Route: 065
  15. NIVOLUMAB [Suspect]
     Active Substance: NIVOLUMAB
     Dosage: 3 MG/KG, UNK
     Route: 041
     Dates: start: 20160119, end: 20160119
  16. NIVOLUMAB [Suspect]
     Active Substance: NIVOLUMAB
     Dosage: 3 MG/KG, UNK
     Route: 041
     Dates: start: 20160209, end: 20160209
  17. RINDERON VG [Concomitant]
     Active Substance: BETAMETHASONE VALERATE\GENTAMICIN SULFATE
     Indication: PRODUCT USED FOR UNKNOWN INDICATION
     Dosage: UNK
     Route: 065
     Dates: start: 20150818, end: 20151110
  18. SEISHOKU [Concomitant]
     Active Substance: SODIUM CHLORIDE
     Indication: PRODUCT USED FOR UNKNOWN INDICATION
     Dosage: UNK
     Route: 065
     Dates: start: 20160119, end: 20160209
  19. NIVOLUMAB [Suspect]
     Active Substance: NIVOLUMAB
     Dosage: 2 MG/KG, UNK
     Route: 041
     Dates: start: 20151110, end: 20151110
  20. THYRADIN S [Concomitant]
     Active Substance: LEVOTHYROXINE SODIUM
     Indication: PRODUCT USED FOR UNKNOWN INDICATION
     Dosage: UNK
     Route: 065
     Dates: start: 20151020, end: 20160517
  21. RINDERON VG [Concomitant]
     Active Substance: BETAMETHASONE VALERATE\GENTAMICIN SULFATE
     Dosage: UNK
     Route: 065
     Dates: start: 20140917, end: 20160517
  22. HYALONSAN [Concomitant]
     Indication: PRODUCT USED FOR UNKNOWN INDICATION
     Dosage: UNK
     Route: 065
     Dates: start: 20151201, end: 20160517
  23. NIVOLUMAB [Suspect]
     Active Substance: NIVOLUMAB
     Indication: MALIGNANT MELANOMA
     Dosage: 2 MG/KG, UNK
     Route: 041
     Dates: start: 20150204, end: 20150204
  24. NIVOLUMAB [Suspect]
     Active Substance: NIVOLUMAB
     Dosage: 2 MG/KG, UNK
     Route: 041
     Dates: start: 20150317, end: 20150317
  25. NIVOLUMAB [Suspect]
     Active Substance: NIVOLUMAB
     Dosage: 2 MG/KG, UNK
     Route: 041
     Dates: start: 20150609, end: 20150609
  26. NIVOLUMAB [Suspect]
     Active Substance: NIVOLUMAB
     Dosage: 2 MG/KG, UNK
     Route: 041
     Dates: start: 20151020, end: 20151020
  27. NIVOLUMAB [Suspect]
     Active Substance: NIVOLUMAB
     Dosage: 2 MG/KG, UNK
     Route: 041
     Dates: start: 20150519, end: 20150519
  28. NIVOLUMAB [Suspect]
     Active Substance: NIVOLUMAB
     Dosage: 2 MG/KG, UNK
     Route: 041
     Dates: start: 20150818, end: 20150818
  29. NIVOLUMAB [Suspect]
     Active Substance: NIVOLUMAB
     Dosage: 2 MG/KG, UNK
     Route: 041
     Dates: start: 20151222, end: 20151222

REACTIONS (8)
  - Hyperglycaemia [Not Recovered/Not Resolved]
  - Pyrexia [Unknown]
  - Rash [Unknown]
  - Diarrhoea [Unknown]
  - Death [Fatal]
  - Liver disorder [Recovering/Resolving]
  - Hypothyroidism [Not Recovered/Not Resolved]
  - Hyperthyroidism [Recovered/Resolved]

NARRATIVE: CASE EVENT DATE: 20150519
